FAERS Safety Report 8266731-0 (Version None)
Quarter: 2012Q2

REPORT INFORMATION
  Report Type: 
  Country: None (occurrence: None)
  Receive Date: 20120409
  Receipt Date: 20120329
  Transmission Date: 20120825
  Serious: Yes (Hospitalization)
  Sender: FDA-Public Use
  Company Number: US-BIOGENIDEC-2012BI011399

PATIENT
  Age: 50 Year
  Sex: Female

DRUGS (2)
  1. TYSABRI [Suspect]
     Indication: MULTIPLE SCLEROSIS
     Route: 042
     Dates: start: 20070117, end: 20111101
  2. TYSABRI [Suspect]
     Route: 042
     Dates: start: 20120101

REACTIONS (2)
  - INTERVERTEBRAL DISC PROTRUSION [None]
  - EXOSTOSIS [None]
